FAERS Safety Report 21843908 (Version 1)
Quarter: 2023Q1

REPORT INFORMATION
  Report Type: Spontaneous
  Country: GB (occurrence: GB)
  Receive Date: 20230110
  Receipt Date: 20230110
  Transmission Date: 20230418
  Serious: Yes (Hospitalization, Other)
  Sender: FDA-Public Use
  Company Number: None

PATIENT

DRUGS (58)
  1. DOXYCYCLINE [Suspect]
     Active Substance: DOXYCYCLINE
     Indication: Pulmonary pain
     Dosage: 1 DOSAGE FORM
     Route: 048
  2. ENBREL [Concomitant]
     Active Substance: ETANERCEPT
     Indication: Rheumatoid arthritis
     Dosage: 50 MILLIGRAM, QWK, MYCLIC PEN
     Route: 065
     Dates: start: 20210917
  3. ENBREL [Concomitant]
     Active Substance: ETANERCEPT
     Dosage: 50 MILLIGRAM, QWK, MYCLIC PEN
     Route: 058
     Dates: start: 20100917
  4. PROBIOTICS NOS [Concomitant]
     Active Substance: PROBIOTICS NOS
     Indication: Abdominal discomfort
     Dosage: 750 MILLIGRAM
     Route: 065
  5. ORUVAIL [Concomitant]
     Active Substance: KETOPROFEN
     Indication: Empty sella syndrome
     Route: 065
  6. LACTOBACILLUS RHAMNOSUS [Concomitant]
     Active Substance: LACTOBACILLUS RHAMNOSUS
     Indication: Abdominal discomfort
     Dosage: 750 MILLIGRAM
     Route: 065
  7. CARBAMAZEPINE [Concomitant]
     Active Substance: CARBAMAZEPINE
     Indication: Product used for unknown indication
     Dosage: 750 MILLIGRAM, QD
     Route: 065
     Dates: start: 20210917
  8. CARBAMAZEPINE [Concomitant]
     Active Substance: CARBAMAZEPINE
     Dosage: 750 MILLIGRAM, QD
     Route: 065
     Dates: start: 20200917
  9. CARBAMAZEPINE [Concomitant]
     Active Substance: CARBAMAZEPINE
     Dosage: 750 MILLIGRAM, QD
     Route: 065
     Dates: start: 20100917
  10. FOLIC ACID [Concomitant]
     Active Substance: FOLIC ACID
     Indication: Product used for unknown indication
     Route: 065
  11. VENLAFAXINE HYDROCHLORIDE [Concomitant]
     Active Substance: VENLAFAXINE HYDROCHLORIDE
     Indication: Rheumatoid arthritis
     Dosage: 225 MILLIGRAM, QD
     Route: 065
  12. VENLAFAXINE HYDROCHLORIDE [Concomitant]
     Active Substance: VENLAFAXINE HYDROCHLORIDE
     Indication: Depression
  13. VENLAFAXINE HYDROCHLORIDE [Concomitant]
     Active Substance: VENLAFAXINE HYDROCHLORIDE
     Indication: Depression
     Dosage: 225 MILLIGRAM, QD
     Route: 065
  14. VENLAFAXINE HYDROCHLORIDE [Concomitant]
     Active Substance: VENLAFAXINE HYDROCHLORIDE
     Indication: Rheumatoid arthritis
  15. METHOTREXATE [Concomitant]
     Active Substance: METHOTREXATE
     Indication: Rheumatoid arthritis
     Dosage: 17.5 MILLIGRAM, QWK
     Route: 065
     Dates: start: 20100917
  16. METHOTREXATE [Concomitant]
     Active Substance: METHOTREXATE
     Dosage: 18 MILLIGRAM, QWK
     Route: 065
  17. AMINOPHYLLINE [Concomitant]
     Active Substance: AMINOPHYLLINE
     Indication: Product used for unknown indication
     Dosage: 400 MILLIGRAM, QD
     Route: 065
     Dates: start: 20200917
  18. AMINOPHYLLINE [Concomitant]
     Active Substance: AMINOPHYLLINE
     Dosage: 400 MILLIGRAM, QD
     Route: 065
     Dates: start: 20100917
  19. AMOXICILLIN [Concomitant]
     Active Substance: AMOXICILLIN
     Indication: Abdominal discomfort
     Dosage: 125 MILLIGRAM PER 5 MILLILITRE
     Route: 065
     Dates: start: 20210904
  20. VENLAFAXINE [Concomitant]
     Active Substance: VENLAFAXINE HYDROCHLORIDE
     Indication: Depression
     Dosage: 225 MILLIGRAM, QD, PROLONGED-RELEASE CAPSULE
     Route: 065
  21. VENLAFAXINE [Concomitant]
     Active Substance: VENLAFAXINE HYDROCHLORIDE
     Indication: Rheumatoid arthritis
  22. BENDROFLUMETHIAZIDE [Concomitant]
     Active Substance: BENDROFLUMETHIAZIDE
     Indication: Depression
     Dosage: 750 MILLIGRAM
     Route: 065
  23. BENDROFLUMETHIAZIDE [Concomitant]
     Active Substance: BENDROFLUMETHIAZIDE
     Indication: Pituitary tumour
  24. CARBOCYSTEINE [Concomitant]
     Active Substance: CARBOCYSTEINE
     Indication: Rheumatoid arthritis
     Dosage: 750 MILLIGRAM, QD
     Route: 065
     Dates: start: 20210917
  25. CARBOCYSTEINE [Concomitant]
     Active Substance: CARBOCYSTEINE
     Dosage: 750 MILLIGRAM, QD
     Route: 065
     Dates: start: 20120917
  26. CARBOCYSTEINE [Concomitant]
     Active Substance: CARBOCYSTEINE
     Dosage: 750 MILLIGRAM, QD
     Route: 065
     Dates: start: 20100917
  27. ZINC [Concomitant]
     Active Substance: ZINC
     Indication: Depression
     Dosage: 750 MILLIGRAM, QD
     Route: 065
  28. OMEPRAZOLE [Concomitant]
     Active Substance: OMEPRAZOLE
     Indication: Abdominal discomfort
     Dosage: 80 MILLIGRAM, QD
     Route: 065
     Dates: start: 20200917
  29. OMEPRAZOLE [Concomitant]
     Active Substance: OMEPRAZOLE
     Dosage: 40 MILLIGRAM, QD, 20 MG BID
     Route: 065
     Dates: start: 20100917
  30. OMEPRAZOLE [Concomitant]
     Active Substance: OMEPRAZOLE
     Dosage: 80 MILLIGRAM, QD
     Route: 065
     Dates: start: 20100917
  31. OMEPRAZOLE [Concomitant]
     Active Substance: OMEPRAZOLE
     Dosage: 20 MILLIGRAM PER HOUR, 480 MILLIGRAM DAILY; 20 MG, 2X/DAY
     Route: 065
  32. OMEPRAZOLE [Concomitant]
     Active Substance: OMEPRAZOLE
     Dosage: 40 MILLIGRAM, QD, 20 MG BID
     Route: 065
  33. OMEPRAZOLE [Concomitant]
     Active Substance: OMEPRAZOLE
     Dosage: 80 MILLIGRAM, QD, 40 MG, QD (20 MG, 2X/DAY)
     Route: 065
     Dates: start: 20100917
  34. OMEPRAZOLE [Concomitant]
     Active Substance: OMEPRAZOLE
     Dosage: 80 MILLIGRAM, QD
     Route: 065
  35. OMEPRAZOLE [Concomitant]
     Active Substance: OMEPRAZOLE
     Dosage: 20 MILLIGRAM, QD
     Route: 065
  36. CIPROFLOXACIN HYDROCHLORIDE [Concomitant]
     Active Substance: CIPROFLOXACIN HYDROCHLORIDE
     Indication: Abdominal discomfort
     Dosage: 1000 MILLIGRAM, QD
     Route: 065
     Dates: start: 20200917
  37. CIPROFLOXACIN HYDROCHLORIDE [Concomitant]
     Active Substance: CIPROFLOXACIN HYDROCHLORIDE
     Indication: Depression
     Dosage: 1000 MILLIGRAM, QD
     Route: 065
     Dates: start: 20100917
  38. CIPROFLOXACIN HYDROCHLORIDE [Concomitant]
     Active Substance: CIPROFLOXACIN HYDROCHLORIDE
     Indication: Rheumatoid arthritis
     Dosage: 1000 MILLIGRAM, QD
     Route: 065
  39. SULFAGUANIDINE [Concomitant]
     Active Substance: SULFAGUANIDINE
     Indication: Product used for unknown indication
     Dosage: 750 MILLIGRAM, QD
     Route: 065
  40. CABERGOLINE [Concomitant]
     Active Substance: CABERGOLINE
     Indication: Pituitary tumour
     Dosage: UNK DOSAGE FORM
     Route: 065
  41. CABERGOLINE [Concomitant]
     Active Substance: CABERGOLINE
     Indication: Empty sella syndrome
  42. CIPROFLOXACIN [Concomitant]
     Active Substance: CIPROFLOXACIN
     Indication: Depression
     Dosage: 1000 MILLIGRAM, QD
     Route: 065
     Dates: start: 20100917
  43. EZETIMIBE [Concomitant]
     Active Substance: EZETIMIBE
     Indication: Product used for unknown indication
     Dosage: 1 DOSAGE FORM
     Route: 065
  44. IRBESARTAN [Concomitant]
     Active Substance: IRBESARTAN
     Indication: Abdominal discomfort
     Dosage: 150 GRAM, QD
     Route: 065
     Dates: start: 20100917
  45. IRBESARTAN [Concomitant]
     Active Substance: IRBESARTAN
     Dosage: 150 GRAM, QD
     Route: 065
     Dates: start: 20100912
  46. CETIRIZINE [Concomitant]
     Active Substance: CETIRIZINE HYDROCHLORIDE
     Indication: Abdominal discomfort
     Route: 065
  47. THEOPHYLLINE [Concomitant]
     Active Substance: THEOPHYLLINE
     Indication: Abdominal discomfort
     Dosage: 750 MILLIGRAM, QD
     Route: 065
  48. GUANIDINE [Concomitant]
     Active Substance: GUANIDINE
     Indication: Depression
     Dosage: 750 MILLIGRAM, QD
     Route: 065
  49. GUANIDINE [Concomitant]
     Active Substance: GUANIDINE
     Indication: Abdominal discomfort
  50. LEVOTHYROXINE [Concomitant]
     Active Substance: LEVOTHYROXINE
     Indication: Abdominal discomfort
     Route: 065
  51. BIFIDOBACTERIUM LONGUM [Concomitant]
     Active Substance: BIFIDOBACTERIUM LONGUM
     Indication: Abdominal discomfort
     Dosage: 750 MILLIGRAM
     Route: 065
  52. ACTIVATED CHARCOAL [Concomitant]
     Active Substance: ACTIVATED CHARCOAL
     Indication: Product used for unknown indication
     Dosage: 750 MILLIGRAM
     Route: 065
  53. PHYLLOCONTIN [Concomitant]
     Active Substance: AMINOPHYLLINE
     Indication: Product used for unknown indication
     Dosage: 400 MILLIGRAM, QD
     Route: 065
     Dates: start: 20100917
  54. PHYLLOCONTIN [Concomitant]
     Active Substance: AMINOPHYLLINE
     Dosage: 400 MILLIGRAM, QD
     Route: 065
     Dates: start: 20200917
  55. PHYLLOCONTIN [Concomitant]
     Active Substance: AMINOPHYLLINE
     Dosage: 400 MILLIGRAM, QD
     Route: 065
  56. THEOPHYLLINE [Concomitant]
     Active Substance: THEOPHYLLINE
     Indication: Depression
     Dosage: 750 MILLIGRAM, QD
     Route: 065
  57. ACTIVATED CHARCOAL [Concomitant]
     Active Substance: ACTIVATED CHARCOAL
     Indication: Product used for unknown indication
     Dosage: 750 MILLIGRAM, QD
     Route: 065
  58. ACTIVATED CHARCOAL [Concomitant]
     Active Substance: ACTIVATED CHARCOAL
     Dosage: 750 MILLIGRAM
     Route: 065

REACTIONS (9)
  - Lower respiratory tract infection [Not Recovered/Not Resolved]
  - Knee arthroplasty [Unknown]
  - Arthropathy [Unknown]
  - Amyloid arthropathy [Unknown]
  - Rash [Not Recovered/Not Resolved]
  - Pulmonary pain [Unknown]
  - Abdominal discomfort [Unknown]
  - Obesity [Unknown]
  - Intentional product use issue [Recovered/Resolved]

NARRATIVE: CASE EVENT DATE: 20201001
